FAERS Safety Report 23784943 (Version 1)
Quarter: 2024Q2

REPORT INFORMATION
  Report Type: Spontaneous
  Country: US (occurrence: US)
  Receive Date: 20240425
  Receipt Date: 20240425
  Transmission Date: 20240715
  Serious: Yes (Hospitalization, Other)
  Sender: FDA-Public Use
  Company Number: US-GLAXOSMITHKLINE-US2024GSK052567

PATIENT

DRUGS (13)
  1. BUPROPION HYDROCHLORIDE XL [Suspect]
     Active Substance: BUPROPION HYDROCHLORIDE
     Indication: Major depression
     Dosage: 450 MG, 1D
  2. BUPROPION HYDROCHLORIDE XL [Suspect]
     Active Substance: BUPROPION HYDROCHLORIDE
     Indication: Post-traumatic stress disorder
  3. BUPROPION HYDROCHLORIDE XL [Suspect]
     Active Substance: BUPROPION HYDROCHLORIDE
     Indication: Generalised anxiety disorder
  4. VENLAFAXINE [Suspect]
     Active Substance: VENLAFAXINE HYDROCHLORIDE
     Indication: Major depression
     Dosage: 375 MG, 1D
  5. VENLAFAXINE [Suspect]
     Active Substance: VENLAFAXINE HYDROCHLORIDE
     Indication: Post-traumatic stress disorder
  6. VENLAFAXINE [Suspect]
     Active Substance: VENLAFAXINE HYDROCHLORIDE
     Indication: Generalised anxiety disorder
  7. PSILOCYBINE [Suspect]
     Active Substance: PSILOCYBINE
     Indication: Major depression
     Dosage: MICRODOSES, QID
  8. PSILOCYBINE [Suspect]
     Active Substance: PSILOCYBINE
     Indication: Post-traumatic stress disorder
  9. PSILOCYBINE [Suspect]
     Active Substance: PSILOCYBINE
     Indication: Generalised anxiety disorder
  10. TRAZODONE [Suspect]
     Active Substance: TRAZODONE HYDROCHLORIDE
     Indication: Insomnia
     Dosage: 50 TO 100 MG/NIGHT
  11. LORAZEPAM [Concomitant]
     Active Substance: LORAZEPAM
     Indication: Major depression
     Dosage: 1 MG, BID
  12. LORAZEPAM [Concomitant]
     Active Substance: LORAZEPAM
     Indication: Post-traumatic stress disorder
  13. LORAZEPAM [Concomitant]
     Active Substance: LORAZEPAM
     Indication: Generalised anxiety disorder

REACTIONS (1)
  - Serotonin syndrome [Recovered/Resolved]
